FAERS Safety Report 4719178-5 (Version None)
Quarter: 2005Q3

REPORT INFORMATION
  Report Type: 
  Country: None (occurrence: None)
  Receive Date: 20050720
  Receipt Date: 20050630
  Transmission Date: 20060218
  Serious: Yes (Hospitalization)
  Sender: FDA-Public Use
  Company Number: AU_050708688

PATIENT
  Age: 65 Year
  Sex: Female

DRUGS (1)
  1. GEMZAR [Suspect]
     Indication: PANCREATIC CARCINOMA
     Dosage: 1250 MG OTHER
     Route: 050
     Dates: start: 20020101

REACTIONS (2)
  - CARDIOMYOPATHY [None]
  - NEPHROTIC SYNDROME [None]
